FAERS Safety Report 24439901 (Version 1)
Quarter: 2024Q4

REPORT INFORMATION
  Report Type: Spontaneous
  Country: DE (occurrence: DE)
  Receive Date: 20241015
  Receipt Date: 20241015
  Transmission Date: 20250115
  Serious: Yes (Hospitalization)
  Sender: NOVARTIS
  Company Number: DE-002147023-NVSC2024DE200524

PATIENT
  Age: 79 Year
  Sex: Female

DRUGS (2)
  1. ENTRESTO [Suspect]
     Active Substance: SACUBITRIL\VALSARTAN
     Indication: Left ventricular failure
     Dosage: 49 MG/51 MG, QD, ONCE IN THE MORNING (STRENGTH 49 MG/51 MG)
     Route: 065
     Dates: start: 20240820
  2. ENTRESTO [Suspect]
     Active Substance: SACUBITRIL\VALSARTAN
     Dosage: 97 MG/103 MG, QD, ONCE IN THE MORNING (STRENGTH 97 MG/ 103 MG)
     Route: 065
     Dates: start: 20240820

REACTIONS (3)
  - Blood pressure increased [Unknown]
  - Wrong technique in product usage process [Unknown]
  - Product availability issue [Unknown]
